FAERS Safety Report 6429535-7 (Version None)
Quarter: 2009Q4

REPORT INFORMATION
  Report Type: 
  Country: None (occurrence: None)
  Receive Date: 20091102
  Receipt Date: 20091022
  Transmission Date: 20100525
  Serious: No
  Sender: FDA-Public Use
  Company Number: 2009009942

PATIENT
  Age: 71 Year
  Sex: Male
  Weight: 74.8435 kg

DRUGS (5)
  1. PROVIGIL [Suspect]
     Indication: SOMNOLENCE
     Dosage: 100 MG, ONCE, 200 MG, 1 IN 1D)VIA, FEEDING TUBE
     Dates: start: 20090822, end: 20090822
  2. PROVIGIL [Suspect]
     Indication: SOMNOLENCE
     Dosage: 100 MG, ONCE, 200 MG, 1 IN 1D)VIA, FEEDING TUBE
     Dates: start: 20090822, end: 20090824
  3. ZANTAC [Concomitant]
  4. LOVENOX [Concomitant]
  5. UNKNOWN LAXATIVE (SENNOSIDE A+B) [Concomitant]

REACTIONS (9)
  - AGITATION [None]
  - CONFUSIONAL STATE [None]
  - DRUG ERUPTION [None]
  - DYSPHAGIA [None]
  - ENCEPHALITIS [None]
  - IRRITABILITY [None]
  - PANIC ATTACK [None]
  - PRURITUS [None]
  - RASH [None]
